FAERS Safety Report 13257255 (Version 5)
Quarter: 2018Q3

REPORT INFORMATION
  Report Type: Report from Study
  Country: DE (occurrence: DE)
  Receive Date: 20170221
  Receipt Date: 20180821
  Transmission Date: 20181010
  Serious: Yes (Hospitalization)
  Sender: FDA-Public Use
  Company Number: DE-AMGEN-DEUCT2017025486

PATIENT
  Age: 7 Year
  Sex: Male
  Weight: 25.1 kg

DRUGS (20)
  1. ACICLOVIR [Concomitant]
     Active Substance: ACYCLOVIR
     Dosage: 200 MG, UNK
     Route: 048
     Dates: start: 20161215, end: 20180811
  2. PCM [Concomitant]
     Dosage: 250 MG, UNK
     Route: 042
     Dates: start: 20161219, end: 20170130
  3. TOBRAMYCIN. [Concomitant]
     Active Substance: TOBRAMYCIN
     Dosage: 40?120 MG, UNK
     Route: 042
     Dates: start: 20161220, end: 20170205
  4. TMP [Concomitant]
     Active Substance: TRIMETHOPRIM
     Dosage: 120 MG, UNK
     Route: 048
     Dates: start: 20161215, end: 20180811
  5. PREDNISOLON [Concomitant]
     Active Substance: PREDNISOLONE
     Dosage: 10 MG, UNK
     Route: 037
     Dates: start: 20161215, end: 20161215
  6. DEXAMETHASON [Concomitant]
     Active Substance: DEXAMETHASONE
     Dosage: 9 MG, UNK
     Route: 042
     Dates: start: 20161215, end: 20161222
  7. KEVATRIL [Concomitant]
     Active Substance: GRANISETRON HYDROCHLORIDE
     Dosage: 1.3 MG, UNK
     Route: 042
     Dates: start: 20161215, end: 20161217
  8. OMEPRAZOL [Concomitant]
     Active Substance: OMEPRAZOLE
     Dosage: 20 MG, UNK
     Dates: start: 20161215, end: 20170201
  9. BLINATUMOMAB [Suspect]
     Active Substance: BLINATUMOMAB
     Indication: ACUTE LYMPHOCYTIC LEUKAEMIA
     Dosage: 15 MUG/M2, UNK
     Route: 042
     Dates: start: 20161219, end: 20170130
  10. ROCEPHIN [Concomitant]
     Active Substance: CEFTRIAXONE SODIUM
     Dosage: 2 G, UNK
     Route: 042
     Dates: start: 20170126, end: 20170225
  11. MTX [Concomitant]
     Active Substance: METHOTREXATE SODIUM
     Dosage: 12 MG, UNK
     Route: 037
     Dates: start: 20150624, end: 20170215
  12. VFEND [Concomitant]
     Active Substance: VORICONAZOLE
     Dosage: 150 MG, UNK
     Route: 048
     Dates: start: 20170126, end: 20171002
  13. PENICILLIN [Concomitant]
     Active Substance: PENICILLIN
     Dosage: 600000 UNK, UNK
     Dates: start: 20161215, end: 20170124
  14. ALLOPURINOL. [Concomitant]
     Active Substance: ALLOPURINOL
     Dosage: 100?150 MG, UNK
     Route: 048
     Dates: start: 20161215, end: 20170201
  15. CYTARABIN [Concomitant]
     Active Substance: CYTARABINE
     Dosage: 30 MG, UNK
     Route: 037
     Dates: start: 20161215, end: 20170215
  16. TEICOPLANIN [Concomitant]
     Active Substance: TEICOPLANIN
     Dosage: 240 MG, UNK
     Route: 042
     Dates: start: 20170126, end: 20170213
  17. FUROSEMID [Concomitant]
     Active Substance: FUROSEMIDE
     Dosage: 7 MG, UNK
     Route: 042
     Dates: start: 20161216, end: 20161230
  18. TAZOBACTAM [Concomitant]
     Active Substance: TAZOBACTAM
     Dosage: 1.6 G, UNK
     Route: 042
     Dates: start: 20161220, end: 20161223
  19. PRIVIGEN [Concomitant]
     Active Substance: HUMAN IMMUNOGLOBULIN G
     Dosage: 5 G, UNK
     Route: 042
     Dates: start: 20170103, end: 20170125
  20. AMIKACIN. [Concomitant]
     Active Substance: AMIKACIN
     Dosage: 375 MG, UNK
     Route: 042
     Dates: start: 20170206, end: 20170213

REACTIONS (1)
  - Leukaemia recurrent [Recovered/Resolved]

NARRATIVE: CASE EVENT DATE: 20170213
